FAERS Safety Report 9306784 (Version 2)
Quarter: 2013Q3

REPORT INFORMATION
  Report Type: Spontaneous
  Country: US (occurrence: None)
  Receive Date: 20130322
  Receipt Date: 20130815
  Transmission Date: 20140515
  Serious: Yes (Hospitalization, Other)
  Sender: FDA-Public Use
  Company Number: ADR-2013-00380

PATIENT
  Sex: Male

DRUGS (1)
  1. LIORESAL [Suspect]
     Indication: MUSCLE SPASTICITY

REACTIONS (7)
  - Nausea [None]
  - Vomiting [None]
  - Device dislocation [None]
  - Medical device complication [None]
  - Product adhesion issue [None]
  - Device difficult to use [None]
  - Implant site fibrosis [None]
